FAERS Safety Report 10437868 (Version 1)
Quarter: 2014Q3

REPORT INFORMATION
  Report Type: Spontaneous
  Country: US (occurrence: None)
  Receive Date: 20140905
  Receipt Date: 20140905
  Transmission Date: 20150326
  Serious: Yes (Hospitalization)
  Sender: FDA-Public Use
  Company Number: None

PATIENT
  Age: 52 Year
  Sex: Female

DRUGS (1)
  1. STIVARGA [Suspect]
     Active Substance: REGORAFENIB
     Dosage: 160MG  DAILY FOR 21 DAYS, THEN     PO
     Route: 048
     Dates: start: 20140808, end: 20140903

REACTIONS (2)
  - Blood pressure abnormal [None]
  - Liver disorder [None]

NARRATIVE: CASE EVENT DATE: 20140903
